FAERS Safety Report 5593717-7 (Version None)
Quarter: 2008Q1

REPORT INFORMATION
  Report Type: 
  Country: None (occurrence: None)
  Receive Date: 20080116
  Receipt Date: 20071205
  Transmission Date: 20080703
  Serious: No
  Sender: FDA-Public Use
  Company Number: US-BAYER-200714044BCC

PATIENT
  Age: 74 Year
  Sex: Female
  Weight: 54 kg

DRUGS (7)
  1. ALEVE [Suspect]
     Indication: PAIN
     Dosage: TOTAL DAILY DOSE: 220 MG  UNIT DOSE: 220 MG
     Route: 048
     Dates: start: 20071204, end: 20071205
  2. ASPIRIN [Suspect]
     Indication: CARDIOVASCULAR EVENT PROPHYLAXIS
     Dosage: TOTAL DAILY DOSE: 81 MG  UNIT DOSE: 81 MG
     Route: 048
  3. PROGRAF [Concomitant]
     Indication: UNEVALUABLE EVENT
  4. CENTRUM [Concomitant]
     Indication: VITAMIN SUPPLEMENTATION
  5. PROTONIX [Concomitant]
     Indication: UNEVALUABLE EVENT
  6. ZOLOFT [Concomitant]
     Indication: ANXIETY
  7. MAGNESIUM OXIDE [Concomitant]

REACTIONS (1)
  - LIP SWELLING [None]
